FAERS Safety Report 5393987-4 (Version None)
Quarter: 2007Q3

REPORT INFORMATION
  Report Type: 
  Country: None (occurrence: None)
  Receive Date: 20070723
  Receipt Date: 20061218
  Transmission Date: 20080115
  Serious: No
  Sender: FDA-Public Use
  Company Number: A0631948A

PATIENT
  Age: 65 Year
  Sex: Female

DRUGS (11)
  1. AVANDIA [Suspect]
     Dosage: 8MG PER DAY
     Route: 048
  2. AMARYL [Concomitant]
  3. LANTUS [Concomitant]
  4. HUMALOG [Concomitant]
  5. LIPITOR [Concomitant]
  6. SPIRONOLACTONE [Concomitant]
  7. LISINOPRIL [Concomitant]
  8. NSAIDS [Concomitant]
  9. MULTI-VITAMIN [Concomitant]
  10. ASPIRIN [Concomitant]
  11. OCTOVIT [Concomitant]

REACTIONS (3)
  - BLISTER [None]
  - LICHEN PLANUS [None]
  - MOUTH ULCERATION [None]
